FAERS Safety Report 14700357 (Version 1)
Quarter: 2018Q1

REPORT INFORMATION
  Report Type: Spontaneous
  Country: US (occurrence: US)
  Receive Date: 20180330
  Receipt Date: 20180330
  Transmission Date: 20180509
  Serious: Yes (Other)
  Sender: FDA-Public Use
  Company Number: None

PATIENT
  Sex: Male
  Weight: 90.72 kg

DRUGS (1)
  1. LEVAQUIN [Suspect]
     Active Substance: LEVOFLOXACIN
     Dosage: 1 WEEK IV HOSPITAL?1 WEEK PILLS AT HOME

REACTIONS (8)
  - Pneumonia [None]
  - Gait disturbance [None]
  - Neuropathy peripheral [None]
  - Toxicity to various agents [None]
  - Quality of life decreased [None]
  - Vibratory sense increased [None]
  - Hypoaesthesia [None]
  - Paraesthesia [None]
